FAERS Safety Report 5451467-1 (Version None)
Quarter: 2007Q3

REPORT INFORMATION
  Report Type: 
  Country: None (occurrence: None)
  Receive Date: 20070913
  Receipt Date: 20070906
  Transmission Date: 20080115
  Serious: Yes (Hospitalization)
  Sender: FDA-Public Use
  Company Number: US-GENENTECH-246643

PATIENT
  Sex: Male

DRUGS (10)
  1. RANIBIZUMAB [Suspect]
     Indication: MACULAR DEGENERATION
     Route: 031
     Dates: start: 20060302
  2. GLYBURIDE [Concomitant]
     Indication: DIABETES MELLITUS
     Dates: start: 20000101
  3. GLUCOPHAGE [Concomitant]
     Indication: DIABETES MELLITUS
     Dates: start: 20050801
  4. LOPRESSOR [Concomitant]
     Indication: HYPERTENSION
     Dates: start: 20000101
  5. PLAVIX [Concomitant]
     Indication: CORONARY ARTERY DISEASE
     Dates: start: 20050101
  6. ASPIRIN [Concomitant]
     Indication: PROPHYLAXIS
     Dates: start: 20000101
  7. LISINOPRIL [Concomitant]
     Indication: HYPERTENSION
     Dates: start: 20050101
  8. ISOSORBIDE DINITRATE [Concomitant]
     Indication: HYPERTENSION
     Dates: start: 20050101
  9. LIPITOR [Concomitant]
     Indication: BLOOD CHOLESTEROL INCREASED
     Dates: start: 20040101
  10. HYDROCHLOROTHIAZIDE [Concomitant]
     Indication: HYPERTENSION
     Dates: start: 20050701

REACTIONS (1)
  - BUNDLE BRANCH BLOCK RIGHT [None]
